FAERS Safety Report 4391222-7 (Version None)
Quarter: 2004Q2

REPORT INFORMATION
  Report Type: 
  Country: None (occurrence: None)
  Receive Date: 20040621
  Receipt Date: 20031111
  Transmission Date: 20050107
  Serious: Yes (Hospitalization, Other)
  Sender: FDA-Public Use
  Company Number: USA-2002-0002145

PATIENT
  Age: 56 Year
  Sex: Female
  Weight: 66.7 kg

DRUGS (18)
  1. OXYCONTIN [Suspect]
     Indication: PAIN
     Dosage: 20 MG, Q12H, ORAL
     Route: 048
     Dates: start: 20000214, end: 20000504
  2. SOMA [Suspect]
     Dosage: 350 MG, BID, ORAL
     Route: 048
  3. ATIVAN [Concomitant]
  4. POTASSIUM CHLORIDE [Concomitant]
  5. COLCHICINE [Concomitant]
  6. TORADOL [Concomitant]
  7. PREDNISONE [Concomitant]
  8. PAXIL [Concomitant]
  9. ALLOPURINOL [Concomitant]
  10. TRAZODONE HCL [Concomitant]
  11. LORTAB [Concomitant]
  12. PROZAC [Concomitant]
  13. MAXZIDE [Concomitant]
  14. PRILOSEC [Concomitant]
  15. LASIX [Concomitant]
  16. BUCETALON [Concomitant]
  17. PREMARIN [Concomitant]
  18. LORTAB [Concomitant]

REACTIONS (16)
  - ABDOMINAL PAIN [None]
  - ANXIETY [None]
  - DEPRESSION [None]
  - DRUG ABUSER [None]
  - DRUG DEPENDENCE [None]
  - DRUG WITHDRAWAL SYNDROME [None]
  - EMOTIONAL DISTRESS [None]
  - ERYTHEMA [None]
  - FREQUENT BOWEL MOVEMENTS [None]
  - GOUT [None]
  - INSOMNIA [None]
  - IRRITABILITY [None]
  - OEDEMA PERIPHERAL [None]
  - PAIN [None]
  - SWELLING [None]
  - TREMOR [None]
